FAERS Safety Report 10752814 (Version 1)
Quarter: 2015Q1

REPORT INFORMATION
  Report Type: Report from Study
  Country: BR (occurrence: BR)
  Receive Date: 20150130
  Receipt Date: 20150130
  Transmission Date: 20150721
  Serious: Yes (Death, Hospitalization, Other)
  Sender: FDA-Public Use
  Company Number: PHHY2015BR010458

PATIENT
  Sex: Female
  Weight: 50 kg

DRUGS (1)
  1. SANDOSTATIN LAR DEPOT [Suspect]
     Active Substance: OCTREOTIDE ACETATE
     Indication: PANCREATIC CARCINOMA
     Dosage: 1 DF, EVERY 28 DAYS
     Route: 030

REACTIONS (6)
  - Feeding disorder [Unknown]
  - Weight decreased [Unknown]
  - Drug ineffective [Unknown]
  - Malignant neoplasm progression [Fatal]
  - Renal disorder [Unknown]
  - Weight increased [Unknown]
